FAERS Safety Report 8375296-4 (Version None)
Quarter: 2012Q2

REPORT INFORMATION
  Report Type: 
  Country: None (occurrence: None)
  Receive Date: 20120522
  Receipt Date: 20120511
  Transmission Date: 20120825
  Serious: No
  Sender: FDA-Public Use
  Company Number: US-BIOGENIDEC-2012BI003727

PATIENT
  Age: 57 Year
  Sex: Female

DRUGS (3)
  1. AVONEX [Concomitant]
     Indication: MULTIPLE SCLEROSIS
     Route: 030
  2. TYSABRI [Suspect]
     Indication: MULTIPLE SCLEROSIS
     Route: 042
     Dates: start: 20120125
  3. AVONEX [Concomitant]
     Route: 030

REACTIONS (8)
  - GLAUCOMA [None]
  - MOBILITY DECREASED [None]
  - VOMITING [None]
  - MIGRAINE [None]
  - PAIN [None]
  - VISUAL IMPAIRMENT [None]
  - MEMORY IMPAIRMENT [None]
  - HEADACHE [None]
